FAERS Safety Report 8802416 (Version 2)
Quarter: 2012Q4

REPORT INFORMATION
  Report Type: 
  Country: CA (occurrence: CA)
  Receive Date: 20120921
  Receipt Date: 20121017
  Transmission Date: 20130627
  Serious: Yes (Other)
  Sender: FDA-Public Use
  Company Number: CA-PFIZER INC-2012232295

PATIENT
  Age: 40 Year
  Sex: Male

DRUGS (3)
  1. LIPITOR [Suspect]
     Indication: STENT PLACEMENT
     Dosage: 20 or 40 mg, 1x/day
     Route: 048
     Dates: start: 2011, end: 201208
  2. ASA [Concomitant]
     Indication: STENT PLACEMENT
     Dosage: 81 mg, UNK
     Route: 048
  3. PLAVIX [Concomitant]
     Indication: STENT PLACEMENT
     Dosage: 75 mg, UNK
     Route: 048

REACTIONS (3)
  - Blood creatine phosphokinase increased [Recovered/Resolved]
  - Fatigue [Recovered/Resolved]
  - Myalgia [Recovered/Resolved]
